FAERS Safety Report 13252203 (Version 1)
Quarter: 2017Q1

REPORT INFORMATION
  Report Type: Spontaneous
  Country: GB (occurrence: GB)
  Receive Date: 20170220
  Receipt Date: 20170220
  Transmission Date: 20170428
  Serious: Yes (Other)
  Sender: FDA-Public Use
  Company Number: GB-009507513-1702GBR007096

PATIENT
  Age: 76 Year
  Sex: Female

DRUGS (6)
  1. BISOPROLOL [Concomitant]
     Active Substance: BISOPROLOL
  2. INDAPAMIDE. [Concomitant]
     Active Substance: INDAPAMIDE
  3. ALENDRONATE SODIUM. [Suspect]
     Active Substance: ALENDRONATE SODIUM
     Route: 048
     Dates: start: 20170124, end: 20170205
  4. ESOMEPRAZOLE MAGNESIUM. [Concomitant]
     Active Substance: ESOMEPRAZOLE MAGNESIUM
  5. DESUNIN [Suspect]
     Active Substance: CHOLECALCIFEROL
     Route: 048
     Dates: start: 20170122, end: 20170205
  6. EZETIMIBE. [Concomitant]
     Active Substance: EZETIMIBE

REACTIONS (10)
  - Vision blurred [Unknown]
  - Oropharyngeal discomfort [Unknown]
  - Fatigue [Unknown]
  - Cough [Unknown]
  - Feeling hot [Unknown]
  - Dyspnoea [Unknown]
  - Dental discomfort [Unknown]
  - Dizziness [Unknown]
  - Influenza like illness [Unknown]
  - Tinnitus [Unknown]

NARRATIVE: CASE EVENT DATE: 20170124
